FAERS Safety Report 10217370 (Version 1)
Quarter: 2014Q2

REPORT INFORMATION
  Report Type: Spontaneous
  Country: BR (occurrence: BR)
  Receive Date: 20140604
  Receipt Date: 20140604
  Transmission Date: 20141212
  Serious: Yes (Other)
  Sender: FDA-Public Use
  Company Number: BR-PFIZER INC-2014148628

PATIENT
  Age: 76 Year
  Sex: Female
  Weight: 74 kg

DRUGS (3)
  1. CITALOR [Suspect]
     Indication: BLOOD CHOLESTEROL ABNORMAL
     Dosage: 20 MG, DAILY
     Route: 048
     Dates: start: 201306, end: 201312
  2. ADALAT OROS [Concomitant]
     Indication: HYPERTENSION
     Dosage: 30 MG, 1X/DAY IN THE MORNING
  3. MICARDIS HCT [Concomitant]
     Indication: HYPERTENSION
     Dosage: 1 DF, 1X/DAY IN THE MORNING

REACTIONS (2)
  - Blindness [Unknown]
  - Glaucoma [Unknown]
